FAERS Safety Report 5956395-0 (Version None)
Quarter: 2008Q4

REPORT INFORMATION
  Report Type: 
  Country: None (occurrence: None)
  Receive Date: 20081112
  Receipt Date: 20081104
  Transmission Date: 20090506
  Serious: Yes (Other)
  Sender: FDA-Public Use
  Company Number: 2008SP022468

PATIENT
  Age: 55 Year
  Sex: Female

DRUGS (2)
  1. PEG-INTRON [Suspect]
     Indication: HEPATITIS C
     Dosage: SC
     Route: 058
     Dates: start: 20081031
  2. RIBAPAK [Suspect]
     Indication: HEPATITIS C
     Dosage: PO
     Route: 048
     Dates: start: 20081031

REACTIONS (4)
  - ABDOMINAL PAIN UPPER [None]
  - CONSTIPATION [None]
  - DECREASED APPETITE [None]
  - RECTAL HAEMORRHAGE [None]
